FAERS Safety Report 24053025 (Version 2)
Quarter: 2024Q3

REPORT INFORMATION
  Report Type: Spontaneous
  Country: DE (occurrence: DE)
  Receive Date: 20240705
  Receipt Date: 20240716
  Transmission Date: 20241016
  Serious: Yes (Other)
  Sender: ALKEM
  Company Number: DE-ALKEM LABORATORIES LIMITED-DE-ALKEM-2024-13936

PATIENT
  Age: 47 Year
  Sex: Female

DRUGS (10)
  1. IBUPROFEN [Suspect]
     Active Substance: IBUPROFEN
     Indication: Hand-foot-and-mouth disease
     Dosage: UNK
     Route: 065
  2. VALSARTAN [Suspect]
     Active Substance: VALSARTAN
     Indication: Premedication
     Dosage: UNK (FILM-COATED TABLET)
     Route: 065
  3. NOVALGIN (METAMIZOLE SODIUM) [Suspect]
     Active Substance: METAMIZOLE SODIUM
     Indication: Hypersensitivity
     Dosage: UNK
     Route: 065
  4. PREDNISOLONE [Suspect]
     Active Substance: PREDNISOLONE
     Indication: Hypersensitivity
     Dosage: 1 MILLIGRAM/KILOGRAM
     Route: 065
  5. PREDNISOLONE [Suspect]
     Active Substance: PREDNISOLONE
     Dosage: 1.5 MILLIGRAM/KILOGRAM
     Route: 065
  6. PREDNISOLONE [Suspect]
     Active Substance: PREDNISOLONE
     Dosage: 0.8 MILLIGRAM/KILOGRAM
     Route: 065
  7. PREDNISOLONE [Suspect]
     Active Substance: PREDNISOLONE
     Dosage: DOSE REDUCED
     Route: 065
  8. CLEMASTINE FUMARATE [Suspect]
     Active Substance: CLEMASTINE FUMARATE
     Indication: Antiallergic therapy
     Dosage: UNK
     Route: 065
  9. CLEMASTINE FUMARATE [Suspect]
     Active Substance: CLEMASTINE FUMARATE
     Indication: Hypersensitivity
     Dosage: UNK (DOSE INCREASED)
     Route: 065
  10. ACETAMINOPHEN [Concomitant]
     Active Substance: ACETAMINOPHEN
     Indication: Hand-foot-and-mouth disease
     Dosage: UNK
     Route: 065

REACTIONS (21)
  - Cholecystitis [Unknown]
  - Dysuria [Unknown]
  - Drug reaction with eosinophilia and systemic symptoms [Unknown]
  - Erythema [Unknown]
  - Hepatomegaly [Unknown]
  - Interstitial lung disease [Unknown]
  - Lymphadenopathy [Unknown]
  - Macule [Unknown]
  - Proteinuria [Unknown]
  - Splenomegaly [Unknown]
  - Swelling of eyelid [Unknown]
  - Scab [Unknown]
  - Syncope [Unknown]
  - Eosinophilia [Unknown]
  - Swelling face [Unknown]
  - Pyrexia [Unknown]
  - Rash maculo-papular [Unknown]
  - Condition aggravated [Unknown]
  - Abdominal pain [Unknown]
  - Cytomegalovirus infection [Unknown]
  - Staphylococcal infection [Recovered/Resolved]
